FAERS Safety Report 9538723 (Version 4)
Quarter: 2014Q2

REPORT INFORMATION
  Report Type: Report from Study
  Country: DE (occurrence: DE)
  Receive Date: 20130920
  Receipt Date: 20140525
  Transmission Date: 20141212
  Serious: Yes (Hospitalization, Other)
  Sender: FDA-Public Use
  Company Number: PHHY2013DE103619

PATIENT
  Age: 49 Year
  Sex: Female
  Weight: 65 kg

DRUGS (6)
  1. ICL670A [Suspect]
     Indication: HAEMOCHROMATOSIS
     Dosage: 1250 MG, PER DAY
     Route: 048
     Dates: start: 20130514, end: 20130523
  2. ICL670A [Suspect]
     Indication: PYRUVATE KINASE DEFICIENCY ANAEMIA
     Dosage: 1250 MG, PER DAY
     Route: 048
     Dates: start: 20130604
  3. ICL670A [Suspect]
     Indication: OFF LABEL USE
  4. ICL670A [Suspect]
     Indication: IRON OVERLOAD
  5. PANTOZOL [Concomitant]
     Indication: PROPHYLAXIS
     Dosage: 40 MG, DAILY
     Dates: start: 20130704
  6. NOVALGIN                                /SCH/ [Concomitant]
     Dosage: 30 DRP, PRN

REACTIONS (4)
  - Dyspnoea [Recovered/Resolved]
  - Urinary tract infection [Recovered/Resolved]
  - Rash [Recovered/Resolved]
  - Cystitis [Recovered/Resolved]
